FAERS Safety Report 11073691 (Version 1)
Quarter: 2015Q2

REPORT INFORMATION
  Report Type: Spontaneous
  Country: FR (occurrence: FR)
  Receive Date: 20150428
  Receipt Date: 20150428
  Transmission Date: 20150821
  Serious: Yes (Hospitalization)
  Sender: FDA-Public Use
  Company Number: FR-009507513-1504FRA022098

PATIENT
  Age: 62 Year
  Sex: Male

DRUGS (14)
  1. PANTOPRAZOLE [Concomitant]
     Active Substance: PANTOPRAZOLE SODIUM
     Dosage: 20 MG, QD
     Route: 048
  2. PROCORALAN [Suspect]
     Active Substance: IVABRADINE
     Dosage: 1 DF, QD
     Route: 048
  3. CRESTOR [Concomitant]
     Active Substance: ROSUVASTATIN CALCIUM
     Dosage: 1 DF, QD
     Route: 048
  4. DIPROSALIC [Suspect]
     Active Substance: BETAMETHASONE DIPROPIONATE
     Indication: PSORIASIS
     Dosage: UNK
     Route: 061
     Dates: start: 20150313
  5. BETNEVAL [Suspect]
     Active Substance: BETAMETHASONE VALERATE
     Indication: PSORIASIS
     Dosage: UNK
     Route: 061
     Dates: start: 20150313
  6. KARDEGIC [Concomitant]
     Active Substance: ASPIRIN LYSINE
     Dosage: 1 DF, QD
     Route: 048
  7. PANTOPRAZOLE [Concomitant]
     Active Substance: PANTOPRAZOLE SODIUM
     Dosage: UNK
  8. VENLAFAXINE HYDROCHLORIDE. [Concomitant]
     Active Substance: VENLAFAXINE HYDROCHLORIDE
     Dosage: 7.5 MG, QD
     Route: 048
  9. ALPRAZOLAM. [Concomitant]
     Active Substance: ALPRAZOLAM
     Dosage: 0.5 MG, QD
  10. HUMIRA [Suspect]
     Active Substance: ADALIMUMAB
     Indication: PSORIASIS
     Dosage: UNK
     Dates: start: 201501
  11. XYZALL [Concomitant]
     Active Substance: LEVOCETIRIZINE DIHYDROCHLORIDE
     Dosage: 1 DF, QD
     Route: 048
  12. DIAMICRON [Concomitant]
     Active Substance: GLICLAZIDE
     Dosage: 1 DF, QD
     Route: 048
  13. ZOPICLONE [Suspect]
     Active Substance: ZOPICLONE
     Dosage: 15 MG, QD
     Route: 048
  14. TRIDESONIT [Suspect]
     Active Substance: DESONIDE
     Indication: PSORIASIS
     Dosage: UNK
     Route: 061
     Dates: start: 20150313

REACTIONS (2)
  - Bradycardia [Recovered/Resolved]
  - Ventricular tachycardia [Recovered/Resolved]

NARRATIVE: CASE EVENT DATE: 20150317
